FAERS Safety Report 7067911-2 (Version None)
Quarter: 2010Q4

REPORT INFORMATION
  Report Type: 
  Country: None (occurrence: None)
  Receive Date: 20101028
  Receipt Date: 20101015
  Transmission Date: 20110411
  Serious: Yes (Hospitalization)
  Sender: FDA-Public Use
  Company Number: TR-ELI_LILLY_AND_COMPANY-TR201010004265

PATIENT
  Age: 20 Year
  Sex: Female

DRUGS (3)
  1. CYMBALTA [Suspect]
     Dosage: UNK, UNK
     Route: 048
     Dates: start: 20101012, end: 20101012
  2. PROZAC [Suspect]
     Dosage: 6 D/F, UNK
     Route: 048
     Dates: start: 20101012, end: 20101012
  3. MIRTAZAPINE [Concomitant]
     Dosage: 2 D/F, UNK
     Route: 048
     Dates: start: 20101012, end: 20101012

REACTIONS (5)
  - CONDUCTION DISORDER [None]
  - HEADACHE [None]
  - INTENTIONAL DRUG MISUSE [None]
  - INTENTIONAL OVERDOSE [None]
  - SUICIDE ATTEMPT [None]
